FAERS Safety Report 24406974 (Version 1)
Quarter: 2024Q4

REPORT INFORMATION
  Report Type: Spontaneous
  Country: US (occurrence: None)
  Receive Date: 20241007
  Receipt Date: 20241007
  Transmission Date: 20250114
  Serious: Yes (Hospitalization, Other)
  Sender: UNICHEM
  Company Number: US-Unichem Pharmaceuticals (USA) Inc-UCM202410-001236

PATIENT
  Age: 75 Year
  Sex: Male

DRUGS (5)
  1. AMIODARONE HYDROCHLORIDE [Suspect]
     Active Substance: AMIODARONE HYDROCHLORIDE
     Indication: Atrial fibrillation
     Dosage: UNKNOWN
  2. DEXAMETHASONE [Concomitant]
     Active Substance: DEXAMETHASONE
     Indication: Amyloidosis
     Dosage: UNKNOWN
  3. DARATUMUMAB [Concomitant]
     Active Substance: DARATUMUMAB
     Indication: Amyloidosis
     Dosage: UNKNOWN
  4. POMALIDOMIDE [Concomitant]
     Active Substance: POMALIDOMIDE
     Indication: Amyloidosis
     Dosage: UNKNOWN
  5. PREDNISONE [Concomitant]
     Active Substance: PREDNISONE
     Indication: Prophylaxis

REACTIONS (5)
  - Cardiac failure congestive [Unknown]
  - Pulmonary toxicity [Unknown]
  - Lymphadenopathy [Unknown]
  - Lung infiltration [Unknown]
  - Product use in unapproved indication [Unknown]
